FAERS Safety Report 4817645-7 (Version None)
Quarter: 2005Q3

REPORT INFORMATION
  Report Type: 
  Country: None (occurrence: None)
  Receive Date: 20050929
  Receipt Date: 20050726
  Transmission Date: 20060218
  Serious: No
  Sender: FDA-Public Use
  Company Number: 04P-163-0252686-00

PATIENT
  Age: 43 Year
  Sex: Female
  Weight: 105 kg

DRUGS (10)
  1. HUMIRA [Suspect]
     Indication: RHEUMATOID ARTHRITIS
     Dosage: 40 MG, 1 IN 2 WK, SUBCUTANEOUS
     Route: 058
     Dates: start: 20031201, end: 20040201
  2. HUMIRA [Suspect]
     Indication: RHEUMATOID ARTHRITIS
     Dosage: 40 MG, 1 IN 2 WK, SUBCUTANEOUS
     Route: 058
     Dates: start: 20050101, end: 20050201
  3. PREDNISONE [Concomitant]
  4. METHOTREXATE [Concomitant]
  5. PROVENTIL [Concomitant]
  6. PROPACET 100 [Concomitant]
  7. LEVOTHYROXINE SODIUM [Concomitant]
  8. CREAMS [Concomitant]
  9. HYDROCODONE [Concomitant]
  10. HYZAAR [Concomitant]

REACTIONS (7)
  - DRUG INEFFECTIVE [None]
  - DYSPNOEA [None]
  - INFLUENZA [None]
  - NASOPHARYNGITIS [None]
  - PRURITUS [None]
  - PYREXIA [None]
  - RASH [None]
